FAERS Safety Report 7315169-9 (Version None)
Quarter: 2011Q1

REPORT INFORMATION
  Report Type: 
  Country: None (occurrence: None)
  Receive Date: 20110225
  Receipt Date: 20110215
  Transmission Date: 20110831
  Serious: Yes (Hospitalization, Other)
  Sender: FDA-Public Use
  Company Number: US-ROCHE-734127

PATIENT
  Sex: Female
  Weight: 68 kg

DRUGS (2)
  1. ACCUTANE [Suspect]
     Route: 065
     Dates: start: 19830101, end: 19850101
  2. ACCUTANE [Suspect]
     Indication: ACNE
     Route: 065
     Dates: start: 19820101, end: 19900101

REACTIONS (13)
  - INFLAMMATORY BOWEL DISEASE [None]
  - CHOLELITHIASIS [None]
  - IRRITABLE BOWEL SYNDROME [None]
  - CHOLECYSTITIS CHRONIC [None]
  - APPENDICITIS [None]
  - DEPRESSION [None]
  - RENAL FAILURE [None]
  - URINARY TRACT INFECTION [None]
  - COLITIS ULCERATIVE [None]
  - INTESTINAL PERFORATION [None]
  - DIVERTICULITIS [None]
  - GASTROINTESTINAL INJURY [None]
  - HYPONATRAEMIA [None]
